FAERS Safety Report 8104109-0 (Version None)
Quarter: 2012Q1

REPORT INFORMATION
  Report Type: 
  Country: None (occurrence: None)
  Receive Date: 20120201
  Receipt Date: 20120127
  Transmission Date: 20120608
  Serious: No
  Sender: FDA-Public Use
  Company Number: US-PFIZER INC-2012023416

PATIENT
  Sex: Male
  Weight: 96.145 kg

DRUGS (3)
  1. ZYVOX [Suspect]
     Indication: LOCALISED INFECTION
     Dosage: 600 MG, 2X/DAY
     Route: 048
     Dates: start: 20120118, end: 20120125
  2. LISINOPRIL [Concomitant]
     Indication: BLOOD PRESSURE ABNORMAL
     Dosage: 100 MG, DAILY
  3. METOPROLOL [Concomitant]
     Indication: BLOOD PRESSURE ABNORMAL
     Dosage: 100 MG, DAILY

REACTIONS (4)
  - FATIGUE [None]
  - DYSPNOEA [None]
  - DIZZINESS [None]
  - HEART RATE INCREASED [None]
